FAERS Safety Report 7376921-7 (Version None)
Quarter: 2011Q1

REPORT INFORMATION
  Report Type: 
  Country: None (occurrence: None)
  Receive Date: 20110328
  Receipt Date: 20110321
  Transmission Date: 20110831
  Serious: Yes (Death)
  Sender: FDA-Public Use
  Company Number: US-BAYER-2011-024530

PATIENT
  Sex: Female

DRUGS (4)
  1. ANTIBIOTICS [Concomitant]
     Indication: INFLUENZA
  2. AVELOX [Suspect]
     Indication: INFLUENZA
  3. AVELOX [Suspect]
     Indication: BRONCHITIS
     Dosage: 400 MG, QD
     Route: 048
     Dates: start: 20110217
  4. LOESTRIN 1.5/30 [Concomitant]
     Indication: CONTRACEPTION

REACTIONS (2)
  - RESPIRATORY ARREST [None]
  - DEATH [None]
